FAERS Safety Report 7592321-9 (Version None)
Quarter: 2011Q3

REPORT INFORMATION
  Report Type: 
  Country: None (occurrence: None)
  Receive Date: 20110706
  Receipt Date: 20110629
  Transmission Date: 20111222
  Serious: Yes (Hospitalization, Other)
  Sender: FDA-Public Use
  Company Number: US-JNJFOC-20110310728

PATIENT
  Sex: Female

DRUGS (7)
  1. LEVAQUIN [Suspect]
     Indication: FLANK PAIN
     Route: 042
  2. LEVAQUIN [Suspect]
     Indication: NEPHROLITHIASIS
     Route: 042
  3. LEVAQUIN [Suspect]
     Indication: EAR INFECTION
     Route: 048
     Dates: start: 20061001
  4. LEVAQUIN [Suspect]
     Indication: SINUSITIS
     Route: 048
     Dates: start: 20061001
  5. PREDNISONE [Suspect]
     Indication: FLANK PAIN
     Route: 065
  6. LEVAQUIN [Suspect]
     Indication: STENT PLACEMENT
     Route: 042
  7. LEVAQUIN [Suspect]
     Indication: TYMPANIC MEMBRANE PERFORATION
     Route: 048
     Dates: start: 20061001

REACTIONS (7)
  - BACK INJURY [None]
  - DRUG INEFFECTIVE [None]
  - ARTHRALGIA [None]
  - LIMB INJURY [None]
  - TENDON RUPTURE [None]
  - HYPERTENSION [None]
  - LIGAMENT RUPTURE [None]
